FAERS Safety Report 6998843-3 (Version None)
Quarter: 2010Q3

REPORT INFORMATION
  Report Type: 
  Country: None (occurrence: None)
  Receive Date: 20100920
  Receipt Date: 20100602
  Transmission Date: 20110219
  Serious: No
  Sender: FDA-Public Use
  Company Number: US-ASTRAZENECA-2010SE25458

PATIENT
  Age: 35 Year
  Sex: Male

DRUGS (4)
  1. SEROQUEL XR [Suspect]
     Indication: BIPOLAR DISORDER
     Route: 048
  2. SEROQUEL XR [Suspect]
     Route: 048
  3. SEROQUEL XR [Suspect]
     Route: 048
  4. NEXIUM [Concomitant]

REACTIONS (5)
  - CONFUSIONAL STATE [None]
  - HEADACHE [None]
  - HYPERLIPIDAEMIA [None]
  - SPEECH DISORDER [None]
  - SWOLLEN TONGUE [None]
